FAERS Safety Report 6950875-7 (Version None)
Quarter: 2010Q3

REPORT INFORMATION
  Report Type: 
  Country: None (occurrence: None)
  Receive Date: 20100828
  Receipt Date: 20100301
  Transmission Date: 20110219
  Serious: No
  Sender: FDA-Public Use
  Company Number: US-ABBOTT-10P-163-0629811-00

PATIENT
  Sex: Female
  Weight: 56.75 kg

DRUGS (3)
  1. NIASPAN [Suspect]
     Indication: HYPERLIPIDAEMIA
     Dates: start: 20100225, end: 20100227
  2. ASGIC [Concomitant]
     Indication: MIGRAINE
  3. RELPAX [Concomitant]
     Indication: MIGRAINE

REACTIONS (3)
  - FEELING HOT [None]
  - GENERALISED ERYTHEMA [None]
  - PARAESTHESIA [None]
